FAERS Safety Report 25790025 (Version 1)
Quarter: 2025Q3

REPORT INFORMATION
  Report Type: Spontaneous
  Country: GB (occurrence: GB)
  Receive Date: 20250911
  Receipt Date: 20250911
  Transmission Date: 20251021
  Serious: Yes (Other)
  Sender: DR REDDYS
  Company Number: None

PATIENT

DRUGS (1)
  1. PREGABALIN [Suspect]
     Active Substance: PREGABALIN
     Indication: Pain in extremity

REACTIONS (14)
  - Angina pectoris [Unknown]
  - Confusional state [Unknown]
  - Renal pain [Unknown]
  - Cardiac disorder [Unknown]
  - Abdominal pain upper [Unknown]
  - Dizziness [Unknown]
  - Insomnia [Unknown]
  - Chest pain [Unknown]
  - Dysuria [Unknown]
  - Migraine [Unknown]
  - Vision blurred [Unknown]
  - Constipation [Unknown]
  - Pain in extremity [Unknown]
  - Drug ineffective [Unknown]
